FAERS Safety Report 23864808 (Version 1)
Quarter: 2024Q2

REPORT INFORMATION
  Report Type: Spontaneous
  Country: US (occurrence: US)
  Receive Date: 20240516
  Receipt Date: 20240516
  Transmission Date: 20240716
  Serious: No
  Sender: FDA-Public Use
  Company Number: US-Vitruvias Therapeutics-2157110

PATIENT

DRUGS (1)
  1. CYANOCOBALAMIN [Suspect]
     Active Substance: CYANOCOBALAMIN

REACTIONS (3)
  - Product packaging quantity issue [Unknown]
  - Drug effect less than expected [Unknown]
  - Product substitution issue [Unknown]
